FAERS Safety Report 4429794-6 (Version None)
Quarter: 2004Q3

REPORT INFORMATION
  Report Type: 
  Country: None (occurrence: None)
  Receive Date: 20040817
  Receipt Date: 20040806
  Transmission Date: 20050211
  Serious: Yes (Other)
  Sender: FDA-Public Use
  Company Number: 2004227376US

PATIENT
  Sex: Female

DRUGS (3)
  1. AROMASIN [Suspect]
     Indication: BREAST CANCER
  2. TAMOXIFEN [Concomitant]
  3. ARIMIDEX [Concomitant]

REACTIONS (1)
  - CARDIAC FUNCTION TEST ABNORMAL [None]
